FAERS Safety Report 16906530 (Version 4)
Quarter: 2022Q1

REPORT INFORMATION
  Report Type: Spontaneous
  Country: CA (occurrence: None)
  Receive Date: 20191011
  Receipt Date: 20220125
  Transmission Date: 20220424
  Serious: Yes (Life-Threatening, Other)
  Sender: FDA-Public Use
  Company Number: CA-ORION CORPORATION ORION PHARMA-TREX2019-4131

PATIENT
  Age: 64 Year
  Sex: Female

DRUGS (8)
  1. METHOTREXATE [Suspect]
     Active Substance: METHOTREXATE
     Indication: Rheumatoid arthritis
     Route: 065
  2. METHOTREXATE [Suspect]
     Active Substance: METHOTREXATE
     Indication: Polyarthritis
  3. SULFASALAZINE [Suspect]
     Active Substance: SULFASALAZINE
     Indication: Polyarthritis
     Route: 065
  4. RITUXIMAB [Suspect]
     Active Substance: RITUXIMAB
     Indication: Rheumatoid arthritis
     Route: 065
  5. RITUXIMAB [Suspect]
     Active Substance: RITUXIMAB
     Indication: Polyarthritis
  6. GOLIMUMAB [Suspect]
     Active Substance: GOLIMUMAB
     Indication: Polyarthritis
     Route: 065
  7. HYDROXYCHLOROQUINE [Suspect]
     Active Substance: HYDROXYCHLOROQUINE
     Indication: Polyarthritis
     Route: 065
  8. ORENCIA [Suspect]
     Active Substance: ABATACEPT
     Indication: Polyarthritis
     Route: 065

REACTIONS (9)
  - Contraindicated product administered [Unknown]
  - Product use in unapproved indication [Unknown]
  - Intentional product use issue [Unknown]
  - Disease progression [Unknown]
  - Dysphonia [Unknown]
  - Dyspnoea [Unknown]
  - Odynophagia [Unknown]
  - Rheumatoid arthritis [Unknown]
  - Stridor [Unknown]
